FAERS Safety Report 11100861 (Version 1)
Quarter: 2015Q2

REPORT INFORMATION
  Report Type: Spontaneous
  Country: US (occurrence: US)
  Receive Date: 20150508
  Receipt Date: 20150508
  Transmission Date: 20150821
  Serious: Yes (Hospitalization, Other)
  Sender: FDA-Public Use
  Company Number: US-PFIZER INC-2015151794

PATIENT
  Age: 61 Year
  Sex: Female
  Weight: 141 kg

DRUGS (2)
  1. GABAPENTIN. [Suspect]
     Active Substance: GABAPENTIN
     Dosage: 600 MG, 3X/DAY
     Dates: start: 2013
  2. GABAPENTIN. [Suspect]
     Active Substance: GABAPENTIN
     Indication: NEUROPATHY PERIPHERAL
     Dosage: 400 MG, 4X/DAY

REACTIONS (10)
  - Hypersensitivity [Unknown]
  - Mental status changes [Recovered/Resolved]
  - Agitation [Not Recovered/Not Resolved]
  - Cognitive disorder [Recovered/Resolved]
  - Sinus disorder [Unknown]
  - Disorientation [Recovered/Resolved]
  - Sleep disorder [Unknown]
  - Peripheral swelling [Not Recovered/Not Resolved]
  - Cataract [Recovered/Resolved]
  - Drug ineffective [Unknown]

NARRATIVE: CASE EVENT DATE: 201402
